FAERS Safety Report 10058421 (Version 4)
Quarter: 2014Q3

REPORT INFORMATION
  Report Type: Spontaneous
  Country: US (occurrence: US)
  Receive Date: 20140404
  Receipt Date: 20140703
  Transmission Date: 20150326
  Serious: Yes (Other)
  Sender: FDA-Public Use
  Company Number: PHEH2014US006537

PATIENT
  Sex: Male
  Weight: 71 kg

DRUGS (6)
  1. ELAVIL [Concomitant]
     Active Substance: AMITRIPTYLINE HYDROCHLORIDE
     Dosage: 100 MG, QHS
  2. MYSOLINE [Concomitant]
     Active Substance: PRIMIDONE
     Dosage: 50 MG, BID
  3. GILENYA [Suspect]
     Active Substance: FINGOLIMOD HYDROCHLORIDE
     Indication: MULTIPLE SCLEROSIS
     Dosage: 0.5 MG, QD
     Route: 048
     Dates: end: 20140310
  4. LYRICA [Concomitant]
     Active Substance: PREGABALIN
     Dosage: 150 MG, QID
  5. BACLOFEN. [Concomitant]
     Active Substance: BACLOFEN
     Dosage: 10 MG, TID
  6. PROVIGIL [Concomitant]
     Active Substance: MODAFINIL
     Dosage: 200 MG, QD

REACTIONS (4)
  - Weight decreased [Unknown]
  - Lymphopenia [Unknown]
  - Hypergammaglobulinaemia benign monoclonal [Unknown]
  - Leukopenia [Recovering/Resolving]
